FAERS Safety Report 20069340 (Version 2)
Quarter: 2022Q1

REPORT INFORMATION
  Report Type: Spontaneous
  Country: US (occurrence: US)
  Receive Date: 20211115
  Receipt Date: 20220113
  Transmission Date: 20220423
  Serious: Yes (Hospitalization, Other)
  Sender: FDA-Public Use
  Company Number: US-AMGEN-USASP2021175648

PATIENT
  Age: 87 Year
  Sex: Female

DRUGS (1)
  1. PROLIA [Suspect]
     Active Substance: DENOSUMAB
     Indication: Osteoporosis
     Dosage: UNK
     Route: 065
     Dates: start: 20211103

REACTIONS (6)
  - Cardiac failure congestive [Unknown]
  - Pulmonary congestion [Unknown]
  - Mitral valve incompetence [Unknown]
  - Acute respiratory failure [Unknown]
  - Cardiac valve disease [Unknown]
  - Atrial fibrillation [Unknown]
